FAERS Safety Report 12737479 (Version 2)
Quarter: 2016Q3

REPORT INFORMATION
  Report Type: Spontaneous
  Country: GB (occurrence: GB)
  Receive Date: 20160912
  Receipt Date: 20160926
  Transmission Date: 20161109
  Serious: Yes (Other)
  Sender: FDA-Public Use
  Company Number: GB-PFIZER INC-2016424012

PATIENT
  Sex: Female

DRUGS (2)
  1. LYRICA [Suspect]
     Active Substance: PREGABALIN
     Dosage: UNK
     Dates: start: 201510
  2. CODEINE [Suspect]
     Active Substance: CODEINE
     Dosage: UNK

REACTIONS (1)
  - Ileus paralytic [Unknown]
